FAERS Safety Report 14983696 (Version 2)
Quarter: 2018Q2

REPORT INFORMATION
  Report Type: Spontaneous
  Country: FI (occurrence: FI)
  Receive Date: 20180607
  Receipt Date: 20180622
  Transmission Date: 20180711
  Serious: Yes (Hospitalization)
  Sender: FDA-Public Use
  Company Number: FI-LPDUSPRD-20180957

PATIENT
  Sex: Female
  Weight: 64 kg

DRUGS (2)
  1. FERINJECT [Suspect]
     Active Substance: FERRIC CARBOXYMALTOSE
     Dosage: 80 MG
     Route: 041
     Dates: start: 20180312, end: 20180312
  2. CONCERTA [Concomitant]
     Active Substance: METHYLPHENIDATE HYDROCHLORIDE
     Dosage: 18 MG
     Route: 048

REACTIONS (11)
  - Dyspnoea [Unknown]
  - Lip pruritus [Unknown]
  - Pallor [Unknown]
  - Loss of consciousness [Unknown]
  - Pharyngeal oedema [Unknown]
  - Angioedema [Unknown]
  - Circulatory collapse [Unknown]
  - Laryngeal oedema [Unknown]
  - Oral pruritus [Unknown]
  - Tachycardia [Unknown]
  - Pruritus [Unknown]

NARRATIVE: CASE EVENT DATE: 20180312
